FAERS Safety Report 5079209-2 (Version None)
Quarter: 2006Q3

REPORT INFORMATION
  Report Type: 
  Country: None (occurrence: None)
  Receive Date: 20060808
  Receipt Date: 20060726
  Transmission Date: 20061208
  Serious: Yes (Death, Other)
  Sender: FDA-Public Use
  Company Number: 2006087266

PATIENT
  Age: 80 Year
  Sex: 0

DRUGS (1)
  1. ZYVOX [Suspect]
     Dosage: 1200 MG, INTRAVENOUS
     Route: 042
     Dates: start: 20060617, end: 20060625

REACTIONS (1)
  - PLATELET COUNT DECREASED [None]
